FAERS Safety Report 4280435-0 (Version None)
Quarter: 2004Q1

REPORT INFORMATION
  Report Type: 
  Country: None (occurrence: None)
  Receive Date: 20040126
  Receipt Date: 20040115
  Transmission Date: 20041129
  Serious: Yes (Hospitalization, Disabling)
  Sender: FDA-Public Use
  Company Number: 002#4#2004-00009

PATIENT
  Sex: Female

DRUGS (2)
  1. REGLAN [Suspect]
     Indication: GASTROOESOPHAGEAL REFLUX DISEASE
     Dosage: ORAL
     Route: 048
     Dates: start: 20011109, end: 20021218
  2. METOCLOPRAMIDE [Suspect]
     Indication: GASTROOESOPHAGEAL REFLUX DISEASE
     Dosage: ORAL
     Route: 048
     Dates: start: 20011109, end: 20021218

REACTIONS (15)
  - APHASIA [None]
  - ASTHENIA [None]
  - CEREBROVASCULAR ACCIDENT [None]
  - CONDITION AGGRAVATED [None]
  - DEPRESSION [None]
  - DIABETIC NEUROPATHY [None]
  - DRUG TOXICITY [None]
  - DYSARTHRIA [None]
  - FACIAL PALSY [None]
  - LACUNAR INFARCTION [None]
  - OVERDOSE [None]
  - PARALYSIS [None]
  - SUICIDE ATTEMPT [None]
  - TRANSIENT ISCHAEMIC ATTACK [None]
  - TREMOR [None]
